FAERS Safety Report 6426491-2 (Version None)
Quarter: 2009Q4

REPORT INFORMATION
  Report Type: 
  Country: None (occurrence: None)
  Receive Date: 20091030
  Receipt Date: 20091022
  Transmission Date: 20100525
  Serious: Yes (Hospitalization)
  Sender: FDA-Public Use
  Company Number: 2009AL006772

PATIENT
  Age: 35 Year
  Sex: Female

DRUGS (1)
  1. PROPYL-THIOURACIL [Suspect]

REACTIONS (4)
  - AGRANULOCYTOSIS [None]
  - OROPHARYNGEAL PAIN [None]
  - PYREXIA [None]
  - WHITE BLOOD CELL COUNT DECREASED [None]
